FAERS Safety Report 6495011-9 (Version None)
Quarter: 2009Q4

REPORT INFORMATION
  Report Type: 
  Country: None (occurrence: None)
  Receive Date: 20091214
  Receipt Date: 20090429
  Transmission Date: 20100525
  Serious: Yes (Hospitalization, Other)
  Sender: FDA-Public Use
  Company Number: US-BRISTOL-MYERS SQUIBB COMPANY-14594881

PATIENT
  Age: 26 Year
  Sex: Female

DRUGS (2)
  1. ABILIFY [Suspect]
     Indication: PSYCHIATRIC SYMPTOM
     Dosage: STARTED WITH 2MG/D,INCREASED TO 03APR08,4MG,QD; 26MAR08-5MG PER 1 DAY
     Route: 048
     Dates: start: 20080402
  2. ABILIFY [Suspect]
     Indication: ANTIDEPRESSANT THERAPY
     Dosage: STARTED WITH 2MG/D,INCREASED TO 03APR08,4MG,QD; 26MAR08-5MG PER 1 DAY
     Route: 048
     Dates: start: 20080402

REACTIONS (1)
  - KETOACIDOSIS [None]
